FAERS Safety Report 10896621 (Version 1)
Quarter: 2015Q1

REPORT INFORMATION
  Report Type: Spontaneous
  Country: JP (occurrence: None)
  Receive Date: 20150302
  Receipt Date: 20150302
  Transmission Date: 20150721
  Serious: Yes (Disabling, Other)
  Sender: FDA-Public Use
  Company Number: 2015-10756

PATIENT
  Age: 78 Year
  Sex: Female

DRUGS (6)
  1. DROSYN-T (PHENYLEPHRINE HYDROCHLORIDE TROPICAMIDE) [Concomitant]
  2. XYLOCAINE [Concomitant]
     Active Substance: LIDOCAINE HYDROCHLORIDE
  3. IODINE [Concomitant]
     Active Substance: IODINE
  4. CRAVIT (LEVOFLOXACIN [Concomitant]
  5. TARIVID (OFLOXACIN) [Concomitant]
     Active Substance: OFLOXACIN
  6. EYLEA [Suspect]
     Active Substance: AFLIBERCEPT
     Indication: NEOVASCULAR AGE-RELATED MACULAR DEGENERATION
     Dosage: ONCE IN LEFT EYE
     Route: 031
     Dates: start: 20130606, end: 20130606

REACTIONS (1)
  - Retinal haemorrhage [None]

NARRATIVE: CASE EVENT DATE: 20130905
